FAERS Safety Report 10903743 (Version 1)
Quarter: 2015Q1

REPORT INFORMATION
  Report Type: Spontaneous
  Country: US (occurrence: None)
  Receive Date: 20150304
  Receipt Date: 20150304
  Transmission Date: 20150721
  Serious: Yes (Death, Hospitalization)
  Sender: FDA-Public Use
  Company Number: None

PATIENT
  Age: 1 Year
  Sex: Male
  Weight: 13.9 kg

DRUGS (2)
  1. FLUDARABINE PHOSPHATE. [Suspect]
     Active Substance: FLUDARABINE PHOSPHATE
     Dates: end: 20150204
  2. BUSULFAN [Suspect]
     Active Substance: BUSULFAN
     Dates: end: 20150201

REACTIONS (7)
  - Respiratory failure [None]
  - Abdominal distension [None]
  - Pyrexia [None]
  - Venoocclusive liver disease [None]
  - Multi-organ failure [None]
  - Fluid overload [None]
  - Tachypnoea [None]

NARRATIVE: CASE EVENT DATE: 20150225
